FAERS Safety Report 6335204-4 (Version None)
Quarter: 2009Q3

REPORT INFORMATION
  Report Type: 
  Country: None (occurrence: None)
  Receive Date: 20090828
  Receipt Date: 20090828
  Transmission Date: 20100115
  Serious: Yes (Life-Threatening, Hospitalization)
  Sender: FDA-Public Use
  Company Number: None

PATIENT
  Age: 57 Year
  Sex: Male
  Weight: 99.7913 kg

DRUGS (2)
  1. LOVASTATIN [Suspect]
     Indication: RHABDOMYOLYSIS
     Dosage: 10MG ONCE PER DAY ORAL; 20MG ONCE PER DAY ORAL
     Route: 048
     Dates: start: 20030701, end: 20040101
  2. LOVASTATIN [Suspect]
     Indication: RHABDOMYOLYSIS
     Dosage: 10MG ONCE PER DAY ORAL; 20MG ONCE PER DAY ORAL
     Route: 048
     Dates: start: 20040101, end: 20071201

REACTIONS (6)
  - CONSCIOUSNESS FLUCTUATING [None]
  - DISORIENTATION [None]
  - FALL [None]
  - LACERATION [None]
  - LIVER INJURY [None]
  - LOSS OF CONSCIOUSNESS [None]
